FAERS Safety Report 7995205-7 (Version None)
Quarter: 2011Q4

REPORT INFORMATION
  Report Type: 
  Country: None (occurrence: None)
  Receive Date: 20111220
  Receipt Date: 20111213
  Transmission Date: 20120403
  Serious: Yes (Life-Threatening, Hospitalization, Other)
  Sender: FDA-Public Use
  Company Number: DE-PFIZER INC-2011243776

PATIENT
  Age: 84 Year
  Sex: Female

DRUGS (6)
  1. RAMIPRIL [Suspect]
     Dosage: 5 MG, 1X/DAY
     Route: 048
     Dates: start: 20100421, end: 20110824
  2. IBUPROFEN [Suspect]
     Dosage: 800 MG, 2X/DAY
     Route: 048
     Dates: start: 20090101, end: 20110824
  3. PANTOPRAZOLE SODIUM [Concomitant]
     Dosage: UNK
     Dates: start: 20081201
  4. BROMAZEPAM [Concomitant]
     Dosage: UNK
     Dates: start: 20090101, end: 20110824
  5. REPAGLINIDE [Concomitant]
     Dosage: UNK
     Dates: start: 20100121, end: 20110824
  6. METOCLOPRAMIDE [Concomitant]
     Dosage: UNK
     Dates: start: 20090501, end: 20110101

REACTIONS (5)
  - BLOOD URIC ACID INCREASED [None]
  - HYPOPHAGIA [None]
  - FLUID INTAKE REDUCED [None]
  - RENAL FAILURE ACUTE [None]
  - DEHYDRATION [None]
